FAERS Safety Report 10039119 (Version 1)
Quarter: 2014Q1

REPORT INFORMATION
  Report Type: Spontaneous
  Country: US (occurrence: None)
  Receive Date: 20140306
  Receipt Date: 20140306
  Transmission Date: 20141002
  Serious: Yes (Hospitalization)
  Sender: FDA-Public Use
  Company Number: 163-21880-13062059

PATIENT
  Age: 91 Year
  Sex: Female

DRUGS (6)
  1. REVLIMID [Suspect]
     Indication: PLASMA CELL MYELOMA
     Dosage: 5 MG, 21 IN 21 D, PO 05/21/2013 - TEMPORARILY INTERRUPTED
     Route: 048
     Dates: start: 20130521
  2. DEXAMETHASONE (DEXAMETHASONE) [Concomitant]
  3. CIPRO (CIPROFLOXACIN) [Concomitant]
  4. PRILOSEC (OMEPRAZOLE) [Concomitant]
  5. SENNOSIDES (SENNOSIDE A+B) [Concomitant]
  6. AMITRIPTYLINE (AMITRIPTYLINE) [Concomitant]

REACTIONS (2)
  - Constipation [None]
  - Dehydration [None]
